FAERS Safety Report 25595756 (Version 1)
Quarter: 2025Q3

REPORT INFORMATION
  Report Type: Spontaneous
  Country: IR (occurrence: IR)
  Receive Date: 20250723
  Receipt Date: 20250723
  Transmission Date: 20251021
  Serious: Yes (Hospitalization, Other)
  Sender: Norvium Bioscience
  Company Number: IR-Norvium Bioscience LLC-080445

PATIENT
  Age: 80 Year
  Sex: Female

DRUGS (1)
  1. LITHIUM CARBONATE [Suspect]
     Active Substance: LITHIUM CARBONATE
     Indication: Bipolar disorder

REACTIONS (7)
  - Toxicity to various agents [Recovered/Resolved]
  - Sinus bradycardia [Recovered/Resolved]
  - Communication disorder [Recovered/Resolved]
  - Dysarthria [Recovered/Resolved]
  - Sinus node dysfunction [Recovered/Resolved]
  - Cardiotoxicity [Recovered/Resolved]
  - Loss of consciousness [Recovered/Resolved]
